FAERS Safety Report 24152344 (Version 3)
Quarter: 2024Q4

REPORT INFORMATION
  Report Type: Spontaneous
  Country: JP (occurrence: JP)
  Receive Date: 20240730
  Receipt Date: 20241115
  Transmission Date: 20250115
  Serious: Yes (Death)
  Sender: UCB
  Company Number: JP-UCBJ-CD202406729UCBPHAPROD

PATIENT
  Sex: Male
  Weight: 2.885 kg

DRUGS (1)
  1. LEVETIRACETAM [Suspect]
     Active Substance: LEVETIRACETAM
     Indication: Product used for unknown indication
     Route: 064

REACTIONS (4)
  - Respiratory failure [Fatal]
  - Apgar score low [Unknown]
  - Respiratory tract infection [Unknown]
  - Maternal exposure during pregnancy [Unknown]
